FAERS Safety Report 7157430-7 (Version None)
Quarter: 2010Q4

REPORT INFORMATION
  Report Type: 
  Country: None (occurrence: None)
  Receive Date: 20101214
  Receipt Date: 20101204
  Transmission Date: 20110411
  Serious: Yes (Hospitalization, Disabling, Other)
  Sender: FDA-Public Use
  Company Number: A0890092A

PATIENT
  Sex: Male
  Weight: 90 kg

DRUGS (11)
  1. VALTREX [Suspect]
     Indication: HERPES ZOSTER
     Dosage: 1000MG THREE TIMES PER DAY
     Route: 065
     Dates: start: 20100901, end: 20100909
  2. SYNTHROID [Concomitant]
     Dosage: 1TAB PER DAY
     Route: 065
  3. METFORMIN [Concomitant]
     Dosage: 1TAB THREE TIMES PER DAY
     Route: 065
  4. LIPITOR [Concomitant]
     Dosage: 1TAB AT NIGHT
     Route: 065
  5. FLOMAX [Concomitant]
     Indication: URINARY TRACT OBSTRUCTION
     Dosage: 1TAB PER DAY
     Route: 048
     Dates: start: 20100903, end: 20100917
  6. ASAPHEN [Concomitant]
     Dosage: 1TAB IN THE MORNING
     Route: 065
  7. SUPRAX [Concomitant]
     Dosage: 1TAB PER DAY
     Route: 065
  8. ELOCON [Concomitant]
     Route: 065
  9. CIPRO [Concomitant]
     Dosage: 1TAB PER DAY
     Route: 065
  10. DILAUDID [Concomitant]
     Dosage: 1TAB SEE DOSAGE TEXT
     Route: 065
  11. AMOXICILLIN [Concomitant]
     Dosage: 1CAP THREE TIMES PER DAY
     Route: 065

REACTIONS (8)
  - APHASIA [None]
  - CONFUSIONAL STATE [None]
  - DIZZINESS [None]
  - HYPOAESTHESIA [None]
  - PARAESTHESIA [None]
  - PELVIC FLOOR MUSCLE WEAKNESS [None]
  - TREMOR [None]
  - URINARY TRACT OBSTRUCTION [None]
